FAERS Safety Report 21665328 (Version 2)
Quarter: 2023Q1

REPORT INFORMATION
  Report Type: Spontaneous
  Country: IE (occurrence: IE)
  Receive Date: 20221201
  Receipt Date: 20230202
  Transmission Date: 20230417
  Serious: No
  Sender: FDA-Public Use
  Company Number: IE-ABBVIE-4214987

PATIENT
  Sex: Female
  Weight: 83 kg

DRUGS (2)
  1. TESTOSTERONE [Suspect]
     Active Substance: TESTOSTERONE
     Indication: Product used for unknown indication
     Dosage: STRENGTH16.2, 3 ACTUATIONS OF GEL DAILY, SACHETS
     Route: 062
  2. ESTRADIOL [Suspect]
     Active Substance: ESTRADIOL
     Indication: Product used for unknown indication
     Route: 065

REACTIONS (5)
  - Product use issue [Unknown]
  - Product dispensing error [Unknown]
  - Product dose omission in error [Unknown]
  - Off label use [Unknown]
  - Acne [Recovered/Resolved]
